FAERS Safety Report 9685893 (Version 1)
Quarter: 2013Q4

REPORT INFORMATION
  Report Type: Report from Study
  Country: JP (occurrence: JP)
  Receive Date: 20131113
  Receipt Date: 20131113
  Transmission Date: 20140711
  Serious: Yes (Other)
  Sender: FDA-Public Use
  Company Number: JP-ROCHE-1300842

PATIENT
  Age: 85 Year
  Sex: Female

DRUGS (8)
  1. METHOXY POLYETHYLENE GLYCOL-EPOETIN BETA [Suspect]
     Indication: NEPHROGENIC ANAEMIA
     Route: 058
     Dates: start: 20121002, end: 20121002
  2. LASIX [Concomitant]
     Indication: GLOMERULONEPHRITIS CHRONIC
     Route: 048
  3. ZYLORIC [Concomitant]
     Route: 048
  4. BAYASPIRIN [Concomitant]
     Indication: GLOMERULONEPHRITIS CHRONIC
     Route: 048
  5. ACINON [Concomitant]
     Route: 048
  6. HALCION [Concomitant]
     Route: 048
  7. ACTONEL [Concomitant]
     Route: 048
  8. ALDACTONE A [Concomitant]
     Indication: GLOMERULONEPHRITIS CHRONIC
     Route: 048

REACTIONS (1)
  - Pancytopenia [Recovered/Resolved]
